FAERS Safety Report 25279032 (Version 1)
Quarter: 2025Q2

REPORT INFORMATION
  Report Type: Report from Study
  Country: US (occurrence: US)
  Receive Date: 20250507
  Receipt Date: 20250507
  Transmission Date: 20250717
  Serious: No
  Sender: SANDOZ
  Company Number: US-SANDOZ-SDZ2025US027745

PATIENT
  Age: 11 Year
  Sex: Female

DRUGS (2)
  1. OMNITROPE [Suspect]
     Active Substance: SOMATROPIN
     Indication: Noonan syndrome
     Dosage: 1.4 MG, QD
     Route: 058
     Dates: start: 20250426, end: 20250430
  2. OMNITROPE [Suspect]
     Active Substance: SOMATROPIN
     Indication: Noonan syndrome
     Dosage: 1.4 MG, QD
     Route: 058
     Dates: start: 20250426, end: 20250430

REACTIONS (5)
  - Injection site haemorrhage [Not Recovered/Not Resolved]
  - Injection site pain [Not Recovered/Not Resolved]
  - Exposure via skin contact [Unknown]
  - Incorrect dose administered by device [Unknown]
  - Wrong technique in device usage process [Unknown]

NARRATIVE: CASE EVENT DATE: 20250426
